FAERS Safety Report 5064924-7 (Version None)
Quarter: 2006Q3

REPORT INFORMATION
  Report Type: 
  Country: None (occurrence: None)
  Receive Date: 20060727
  Receipt Date: 20060727
  Transmission Date: 20061208
  Serious: Yes (Hospitalization)
  Sender: FDA-Public Use
  Company Number: None

PATIENT
  Age: 35 Year
  Sex: Female
  Weight: 73.9 kg

DRUGS (10)
  1. PROTONIX [Suspect]
     Indication: GASTROOESOPHAGEAL REFLUX DISEASE
     Dosage: PO
     Route: 048
  2. NEXIUM [Suspect]
     Indication: GASTROOESOPHAGEAL REFLUX DISEASE
     Dosage: PO
     Route: 048
  3. ZOLOFT [Concomitant]
  4. MIRALAX [Concomitant]
  5. CARAFATE [Concomitant]
  6. PEPCID [Concomitant]
  7. NASONEX [Concomitant]
  8. ZELNORM [Concomitant]
  9. AMBIEN [Concomitant]
  10. IMITREX [Concomitant]

REACTIONS (4)
  - HYPERSENSITIVITY [None]
  - SWELLING FACE [None]
  - THROAT IRRITATION [None]
  - WHEEZING [None]
